FAERS Safety Report 17027085 (Version 1)
Quarter: 2019Q4

REPORT INFORMATION
  Report Type: Spontaneous
  Country: CN (occurrence: CN)
  Receive Date: 20191113
  Receipt Date: 20191113
  Transmission Date: 20200122
  Serious: Yes (Hospitalization, Other)
  Sender: FDA-Public Use
  Company Number: CN-ASTRAZENECA-2019SF59853

PATIENT
  Age: 27194 Day
  Sex: Male
  Weight: 50 kg

DRUGS (2)
  1. CRESTOR [Suspect]
     Active Substance: ROSUVASTATIN CALCIUM
     Indication: SUPPLEMENTATION THERAPY
     Route: 048
     Dates: start: 20191015, end: 20191021
  2. CRESTOR [Suspect]
     Active Substance: ROSUVASTATIN CALCIUM
     Indication: SUPPLEMENTATION THERAPY
     Dosage: ROSUVASTATIN CALCIUM 10MG, DAILY
     Route: 048
     Dates: start: 20191015

REACTIONS (2)
  - Liver disorder [Recovering/Resolving]
  - Guillain-Barre syndrome [Unknown]

NARRATIVE: CASE EVENT DATE: 20191021
